FAERS Safety Report 16979447 (Version 2)
Quarter: 2019Q4

REPORT INFORMATION
  Report Type: Spontaneous
  Country: JP (occurrence: JP)
  Receive Date: 20191031
  Receipt Date: 20191115
  Transmission Date: 20200122
  Serious: Yes (Hospitalization)
  Sender: FDA-Public Use
  Company Number: JP-ASTRAZENECA-2019SE78023

PATIENT
  Age: 80 Year
  Sex: Male

DRUGS (7)
  1. DEPAS [Concomitant]
  2. FLIVAS [Concomitant]
     Active Substance: NAFTOPIDIL
     Indication: BENIGN PROSTATIC HYPERPLASIA
  3. REPATHA [Concomitant]
     Active Substance: EVOLOCUMAB
  4. SYMBICORT [Suspect]
     Active Substance: BUDESONIDE\FORMOTEROL FUMARATE DIHYDRATE
     Indication: CHRONIC OBSTRUCTIVE PULMONARY DISEASE
     Dosage: 30 DOSES, DOSE UNKNOWN UNKNOWN
     Route: 055
  5. LIPITOR [Suspect]
     Active Substance: ATORVASTATIN CALCIUM
     Indication: MYOCARDIAL INFARCTION
     Dosage: DOSE UNKNOWN
     Route: 048
  6. ZETIA [Concomitant]
     Active Substance: EZETIMIBE
  7. LENDORMIN [Concomitant]
     Active Substance: BROTIZOLAM

REACTIONS (6)
  - Device occlusion [Unknown]
  - Dizziness [Unknown]
  - Headache [Unknown]
  - Drug eruption [Unknown]
  - Insomnia [Unknown]
  - Gait disturbance [Unknown]

NARRATIVE: CASE EVENT DATE: 2019
